FAERS Safety Report 11575696 (Version 1)
Quarter: 2015Q3

REPORT INFORMATION
  Report Type: Spontaneous
  Country: US (occurrence: None)
  Receive Date: 20150929
  Receipt Date: 20150929
  Transmission Date: 20151125
  Serious: Yes (Life-Threatening, Hospitalization, Other)
  Sender: FDA-Public Use
  Company Number: None

PATIENT
  Age: 64 Year
  Sex: Female
  Weight: 46.72 kg

DRUGS (14)
  1. AN HERB TO TAKE AWAY THE CIGAR TASTE [Concomitant]
  2. AN HERB TEA FOR ANXIETY [Concomitant]
  3. BONE STRENGTHENING FORMULA (A TEA) [Concomitant]
  4. HERBAL RELIEF FORMULA [Concomitant]
  5. MAGNESIUM [Concomitant]
     Active Substance: MAGNESIUM
  6. HERBS FOR MEMORY LOSS [Concomitant]
  7. HUMIRA [Suspect]
     Active Substance: ADALIMUMAB
     Indication: CROHN^S DISEASE
     Route: 030
     Dates: start: 20110901, end: 20150925
  8. ALFALFA [Concomitant]
     Active Substance: ALFALFA
  9. CAPSULES FOR ALCOHOL/DRUG WITHDRAWAL [Concomitant]
  10. K [Concomitant]
  11. CHRONE^S DISEASE HERB MEDICINE (A TEA) [Concomitant]
  12. STONE (A TEA) FOR SPINAL ARTHRITIS [Concomitant]
  13. CALCIUM [Concomitant]
     Active Substance: CALCIUM
  14. LIMBS (AN HERB) FOR SPINAL ARTHRITIS [Concomitant]

REACTIONS (5)
  - Immune system disorder [None]
  - Ear infection [None]
  - Peripheral swelling [None]
  - Arthropathy [None]
  - Sinus disorder [None]

NARRATIVE: CASE EVENT DATE: 20150826
